FAERS Safety Report 22357292 (Version 1)
Quarter: 2023Q2

REPORT INFORMATION
  Report Type: Spontaneous
  Country: US (occurrence: US)
  Receive Date: 20230524
  Receipt Date: 20230524
  Transmission Date: 20230721
  Serious: No
  Sender: FDA-Public Use
  Company Number: US-VIIV HEALTHCARE LIMITED-US2023069864

PATIENT
  Sex: Male
  Weight: 68.49 kg

DRUGS (1)
  1. TRIUMEQ [Suspect]
     Active Substance: ABACAVIR SULFATE\DOLUTEGRAVIR SODIUM\LAMIVUDINE
     Indication: HIV infection CDC Group III
     Dosage: 1 DF, QD (600-50-300 MG)
     Route: 048

REACTIONS (2)
  - Product dose omission issue [Unknown]
  - Product use issue [Unknown]
